FAERS Safety Report 12697044 (Version 1)
Quarter: 2016Q3

REPORT INFORMATION
  Report Type: Spontaneous
  Country: CA (occurrence: CA)
  Receive Date: 20160830
  Receipt Date: 20160830
  Transmission Date: 20161109
  Serious: Yes (Hospitalization)
  Sender: FDA-Public Use
  Company Number: CA-ROCHE-1822199

PATIENT
  Age: 38 Year
  Sex: Female

DRUGS (12)
  1. ERGOCALCIFEROL. [Concomitant]
     Active Substance: ERGOCALCIFEROL
     Dosage: NOT SPECIFIED
     Route: 065
  2. NEVANAC [Concomitant]
     Active Substance: NEPAFENAC
     Dosage: SUSPENSION OPHTHALMIC
     Route: 065
  3. BETAMETHASONE. [Concomitant]
     Active Substance: BETAMETHASONE
     Route: 065
  4. TAMIFLU [Suspect]
     Active Substance: OSELTAMIVIR PHOSPHATE
     Indication: VIRAL INFECTION
     Dosage: THERAPY DURATION:  1.0 DAY(S)  NOT SPECIFIED
     Route: 048
  5. SOLIRIS [Suspect]
     Active Substance: ECULIZUMAB
     Indication: HAEMOLYTIC URAEMIC SYNDROME
     Dosage: SOLUTION INTRAVENOUS
     Route: 042
  6. HYDROMORPHONE [Concomitant]
     Active Substance: HYDROMORPHONE
     Dosage: NOT SPECIFIED
     Route: 065
  7. HYDROXYZINE [Concomitant]
     Active Substance: HYDROXYZINE\HYDROXYZINE HYDROCHLORIDE
     Dosage: NOT SPECIFIED
     Route: 065
  8. PANTOLOC [Concomitant]
     Active Substance: PANTOPRAZOLE SODIUM
     Route: 065
  9. RAMIPRIL. [Concomitant]
     Active Substance: RAMIPRIL
     Dosage: NOT SPECIFIED
     Route: 065
  10. SOLIRIS [Suspect]
     Active Substance: ECULIZUMAB
     Dosage: THERAPY DURATION:  22.0 DAY(S) SOLUTION INTRAVENOUS
     Route: 042
  11. DOXEPIN [Concomitant]
     Active Substance: DOXEPIN
  12. VANCOMYCIN [Concomitant]
     Active Substance: VANCOMYCIN
     Dosage: NOT SPECIFIED
     Route: 065

REACTIONS (3)
  - Blood potassium increased [Unknown]
  - Viral infection [Unknown]
  - Vomiting [Unknown]
